FAERS Safety Report 11769636 (Version 1)
Quarter: 2015Q4

REPORT INFORMATION
  Report Type: Report from Study
  Country: US (occurrence: US)
  Receive Date: 20151123
  Receipt Date: 20151123
  Transmission Date: 20160304
  Serious: Yes (Hospitalization)
  Sender: FDA-Public Use
  Company Number: US-CELGENEUS-USA-2015115330

PATIENT
  Age: 54 Year
  Sex: Female
  Weight: 88.4 kg

DRUGS (2)
  1. DEXAMETHASONE. [Suspect]
     Active Substance: DEXAMETHASONE
     Indication: PLASMA CELL MYELOMA
     Route: 048
     Dates: start: 20150730
  2. REVLIMID [Suspect]
     Active Substance: LENALIDOMIDE
     Indication: PLASMA CELL MYELOMA
     Dosage: 25 MILLIGRAM
     Route: 048
     Dates: start: 20150730

REACTIONS (3)
  - Spinal compression fracture [Recovered/Resolved]
  - Lumbar vertebral fracture [Recovered/Resolved]
  - Osteolysis [Recovered/Resolved]

NARRATIVE: CASE EVENT DATE: 20150804
